FAERS Safety Report 16859956 (Version 1)
Quarter: 2019Q3

REPORT INFORMATION
  Report Type: Report from Study
  Country: US (occurrence: US)
  Receive Date: 20190927
  Receipt Date: 20190927
  Transmission Date: 20191005
  Serious: Yes (Hospitalization)
  Sender: FDA-Public Use
  Company Number: US-BAUSCH-BL-2019-055094

PATIENT
  Age: 81 Year
  Sex: Female

DRUGS (1)
  1. XIFAXAN [Suspect]
     Active Substance: RIFAXIMIN
     Indication: HEPATIC ENCEPHALOPATHY
     Route: 048
     Dates: end: 20190916

REACTIONS (4)
  - Inappropriate schedule of product administration [Unknown]
  - Tremor [Unknown]
  - Mental status changes [Unknown]
  - Renal disorder [Unknown]

NARRATIVE: CASE EVENT DATE: 20190916
